FAERS Safety Report 25319565 (Version 2)
Quarter: 2025Q2

REPORT INFORMATION
  Report Type: Spontaneous
  Country: SE (occurrence: SE)
  Receive Date: 20250515
  Receipt Date: 20250610
  Transmission Date: 20250717
  Serious: Yes (Other)
  Sender: PFIZER
  Company Number: None

PATIENT
  Age: 67 Year
  Sex: Female
  Weight: 92 kg

DRUGS (1)
  1. ESTRADIOL [Suspect]
     Active Substance: ESTRADIOL
     Indication: Atrophic vulvovaginitis
     Dosage: 7.5 UG, 1X/DAY, 1 RING FOR 3 MONTHS
     Route: 067
     Dates: start: 20241007, end: 20250107

REACTIONS (3)
  - Administration site ulcer [Recovering/Resolving]
  - Administration site warmth [Recovering/Resolving]
  - Administration site pain [Recovering/Resolving]

NARRATIVE: CASE EVENT DATE: 20241010
